FAERS Safety Report 10139391 (Version 2)
Quarter: 2014Q2

REPORT INFORMATION
  Report Type: Spontaneous
  Country: US (occurrence: US)
  Receive Date: 20140429
  Receipt Date: 20140528
  Transmission Date: 20141212
  Serious: Yes (Other)
  Sender: FDA-Public Use
  Company Number: US-JNJFOC-20140410361

PATIENT
  Age: 43 Year
  Sex: Female
  Weight: 99.79 kg

DRUGS (6)
  1. DURAGESIC [Suspect]
     Indication: PAIN
     Route: 062
  2. DURAGESIC [Suspect]
     Indication: PAIN
     Route: 062
  3. FENTANYL PATCH [Suspect]
     Indication: PAIN
     Route: 062
  4. VENTOLIN [Concomitant]
     Indication: ASTHMA
     Route: 055
  5. HYDROCHLOROTHIAZIDE [Concomitant]
     Indication: HYPERTENSION
     Route: 048
     Dates: start: 2009
  6. OXYCODONE [Concomitant]
     Indication: BREAKTHROUGH PAIN
     Dosage: 4 TO 6 HR AS NEEDED
     Route: 048
     Dates: start: 2013

REACTIONS (10)
  - Uterine disorder [Not Recovered/Not Resolved]
  - Drug dispensing error [Unknown]
  - Product quality issue [Unknown]
  - Product adhesion issue [Unknown]
  - Wrong technique in drug usage process [Not Recovered/Not Resolved]
  - Weight decreased [Not Recovered/Not Resolved]
  - Drug dose omission [Recovered/Resolved]
  - Product quality issue [Unknown]
  - Panic disorder [Unknown]
  - Drug administered at inappropriate site [Unknown]
